FAERS Safety Report 20489057 (Version 1)
Quarter: 2022Q1

REPORT INFORMATION
  Report Type: Spontaneous
  Country: US (occurrence: US)
  Receive Date: 20220218
  Receipt Date: 20220218
  Transmission Date: 20220423
  Serious: No
  Sender: FDA-Public Use
  Company Number: US-BIOGEN-2022BI01097341

PATIENT
  Sex: Female

DRUGS (5)
  1. AVONEX [Suspect]
     Active Substance: INTERFERON BETA-1A
     Indication: Multiple sclerosis
     Dosage: 1/4TH DOSE IN WEEK 1, 1/2 DOSE IN WEEK 2, 3/4 IN WEEK 3 THEN FULL DOSE INTRAMUSCULARLY WEEKLY THE...
     Route: 030
  2. AVONEX [Suspect]
     Active Substance: INTERFERON BETA-1A
  3. AVONEX [Suspect]
     Active Substance: INTERFERON BETA-1A
  4. AVONEX [Suspect]
     Active Substance: INTERFERON BETA-1A
  5. VARENICLINE [Concomitant]
     Active Substance: VARENICLINE
     Route: 065

REACTIONS (2)
  - Lung disorder [Unknown]
  - Nasopharyngitis [Unknown]
